FAERS Safety Report 5574052-X (Version None)
Quarter: 2007Q4

REPORT INFORMATION
  Report Type: 
  Country: None (occurrence: None)
  Receive Date: 20071221
  Receipt Date: 20071213
  Transmission Date: 20080405
  Serious: Yes (Life-Threatening, Hospitalization)
  Sender: FDA-Public Use
  Company Number: TCI2007A06836

PATIENT
  Age: 83 Year
  Sex: Male

DRUGS (4)
  1. ACTOS [Suspect]
     Indication: DIABETES MELLITUS
     Dosage: 1 D, PER ORAL
     Route: 049
     Dates: start: 20071010, end: 20071113
  2. TAMSULOSIN HCL [Concomitant]
  3. RISPERDAL [Concomitant]
  4. VALPROATE SODIUM [Concomitant]

REACTIONS (5)
  - CARDIAC FAILURE [None]
  - DISSEMINATED INTRAVASCULAR COAGULATION [None]
  - HYPOTHERMIA [None]
  - PNEUMONIA [None]
  - SOMNOLENCE [None]
